FAERS Safety Report 5007107-9 (Version None)
Quarter: 2006Q1

REPORT INFORMATION
  Report Type: 
  Country: None (occurrence: None)
  Receive Date: 20060320
  Receipt Date: 20050620
  Transmission Date: 20060701
  Serious: Yes (Life-Threatening, Hospitalization)
  Sender: FDA-Public Use
  Company Number: 2005-06-1349

PATIENT
  Age: 36 Year
  Sex: Male
  Weight: 75.2971 kg

DRUGS (1)
  1. PEG-INTRON [Suspect]
     Indication: HEPATITIS C
     Dosage: 120 MCG SUBCUTANEOUS
     Route: 058
     Dates: start: 20050524, end: 20050526

REACTIONS (2)
  - AGITATION [None]
  - SUICIDAL IDEATION [None]
